FAERS Safety Report 8606237-X (Version None)
Quarter: 2012Q3

REPORT INFORMATION
  Report Type: 
  Country: None (occurrence: None)
  Receive Date: 20120820
  Receipt Date: 20120112
  Transmission Date: 20120928
  Serious: Yes (Death, Hospitalization)
  Sender: FDA-Public Use
  Company Number: US-ROCHE-1101293

PATIENT
  Sex: Male

DRUGS (5)
  1. ACTIVASE [Suspect]
     Indication: CARDIOGENIC SHOCK
  2. DOPAMINE HCL [Concomitant]
     Dosage: 25 MCG PER MINUTE
     Route: 065
  3. ACTIVASE [Suspect]
     Indication: MYOCARDIAL INFARCTION
     Route: 065
  4. LIDOCAINE [Concomitant]
     Route: 041
  5. LIDOCAINE BOLUS [Concomitant]
     Route: 040

REACTIONS (5)
  - VENTRICULAR FIBRILLATION [None]
  - CONVULSION [None]
  - CYANOSIS [None]
  - VENTRICULAR TACHYCARDIA [None]
  - DEATH [None]
